FAERS Safety Report 10230345 (Version 3)
Quarter: 2014Q3

REPORT INFORMATION
  Report Type: Spontaneous
  Country: US (occurrence: US)
  Receive Date: 20140611
  Receipt Date: 20140730
  Transmission Date: 20150326
  Serious: Yes (Hospitalization, Other)
  Sender: FDA-Public Use
  Company Number: US-BEH-2014043018

PATIENT
  Age: 46 Year
  Sex: Female
  Weight: 123 kg

DRUGS (22)
  1. LITHIUM CARBONATE. [Concomitant]
     Active Substance: LITHIUM CARBONATE
     Indication: DEPRESSION
  2. EFFEXOR [Concomitant]
     Active Substance: VENLAFAXINE HYDROCHLORIDE
     Indication: DEPRESSION
  3. DEXAMETHASONE. [Concomitant]
     Active Substance: DEXAMETHASONE
  4. WELLBUTRIN [Concomitant]
     Active Substance: BUPROPION HYDROCHLORIDE
     Indication: DEPRESSION
  5. LAMICTAL [Concomitant]
     Active Substance: LAMOTRIGINE
     Indication: DEPRESSION
  6. CARIMUNE [Suspect]
     Active Substance: HUMAN IMMUNOGLOBULIN G
     Dates: start: 20130924
  7. CARIMUNE [Suspect]
     Active Substance: HUMAN IMMUNOGLOBULIN G
     Indication: IMMUNODEFICIENCY COMMON VARIABLE
     Dates: start: 20131105
  8. KARIVA [Suspect]
     Active Substance: DESOGESTREL\ETHINYL ESTRADIOL
     Dates: start: 20130915
  9. KETOCONAZOLE. [Concomitant]
     Active Substance: KETOCONAZOLE
     Indication: FUNGAL INFECTION
  10. LEVOTHYROXINE [Concomitant]
     Active Substance: LEVOTHYROXINE
     Indication: HYPOTHYROIDISM
  11. ATIVAN [Concomitant]
     Active Substance: LORAZEPAM
     Indication: DEPRESSION
  12. CARIMUNE [Suspect]
     Active Substance: HUMAN IMMUNOGLOBULIN G
     Dates: start: 20130820
  13. ZOFRAN [Concomitant]
     Active Substance: ONDANSETRON HYDROCHLORIDE
  14. PRAZOSIN [Concomitant]
     Active Substance: PRAZOSIN
     Indication: DEPRESSION
  15. CARIMUNE [Suspect]
     Active Substance: HUMAN IMMUNOGLOBULIN G
     Dates: start: 20130910
  16. CARIMUNE [Suspect]
     Active Substance: HUMAN IMMUNOGLOBULIN G
     Dates: start: 20131015
  17. LEVOTHYROXINE [Concomitant]
     Active Substance: LEVOTHYROXINE
     Indication: GOITRE
  18. ABILIFY [Concomitant]
     Active Substance: ARIPIPRAZOLE
     Indication: DEPRESSION
  19. ALL OTHER THERAPEUTIC PRODUCTS [Concomitant]
     Active Substance: UNSPECIFIED INGREDIENT
     Indication: DEPRESSION
  20. CARIMUNE [Suspect]
     Active Substance: HUMAN IMMUNOGLOBULIN G
     Indication: CONGENITAL HYPOGAMMAGLOBULINAEMIA
     Dosage: ??-???-2007
     Dates: start: 20130730
  21. CARIMUNE [Suspect]
     Active Substance: HUMAN IMMUNOGLOBULIN G
     Dates: start: 20130906
  22. KARIVA [Suspect]
     Active Substance: DESOGESTREL\ETHINYL ESTRADIOL
     Dosage: STOPPED FEB-2013

REACTIONS (10)
  - Peripheral swelling [Recovered/Resolved]
  - Cough [Recovered/Resolved]
  - Lower respiratory tract infection [Recovering/Resolving]
  - Deep vein thrombosis [Recovered/Resolved]
  - Dyspnoea [Recovered/Resolved]
  - Pulmonary embolism [Recovered/Resolved]
  - Gastric bypass [Recovered/Resolved]
  - Peripheral swelling [Recovered/Resolved]
  - Muscle spasms [Recovered/Resolved]
  - Vomiting [Recovered/Resolved]

NARRATIVE: CASE EVENT DATE: 20130828
